FAERS Safety Report 22292308 (Version 4)
Quarter: 2023Q4

REPORT INFORMATION
  Report Type: Spontaneous
  Country: PL (occurrence: PL)
  Receive Date: 20230508
  Receipt Date: 20231007
  Transmission Date: 20240110
  Serious: Yes (Other)
  Sender: FDA-Public Use
  Company Number: PL-RECORDATI-2023002395

PATIENT
  Age: 93 Year
  Sex: Male

DRUGS (3)
  1. SOLIFENACIN [Interacting]
     Active Substance: SOLIFENACIN
     Indication: Micturition urgency
     Dosage: 5 MILLIGRAM, ONCE A DAY
     Route: 065
  2. SOLIFENACIN [Interacting]
     Active Substance: SOLIFENACIN
     Indication: Urinary incontinence
  3. HYDROXYZINE [Interacting]
     Active Substance: HYDROXYZINE HYDROCHLORIDE
     Indication: Sleep disorder
     Dosage: 10 MILLIGRAM, ONCE A DAY (10 MG AT BEDTIME)
     Route: 065

REACTIONS (8)
  - Altered state of consciousness [Unknown]
  - Cognitive disorder [Unknown]
  - Delirium [Unknown]
  - Disorientation [Unknown]
  - Urinary incontinence [Unknown]
  - Drug interaction [Unknown]
  - Patient elopement [Unknown]
  - Sleep disorder [Unknown]
